FAERS Safety Report 4803073-7 (Version None)
Quarter: 2005Q4

REPORT INFORMATION
  Report Type: 
  Country: None (occurrence: None)
  Receive Date: 20051013
  Receipt Date: 20050928
  Transmission Date: 20060501
  Serious: Yes (Hospitalization, Other)
  Sender: FDA-Public Use
  Company Number: US_0510122707

PATIENT
  Age: 70 Year
  Sex: Female

DRUGS (1)
  1. FORTEO [Suspect]
     Indication: OSTEOPOROSIS
     Dates: start: 20050101, end: 20050801

REACTIONS (4)
  - FALL [None]
  - FOOT FRACTURE [None]
  - LOWER LIMB FRACTURE [None]
  - UPPER LIMB FRACTURE [None]
